FAERS Safety Report 8927142 (Version 1)
Quarter: 2012Q4

REPORT INFORMATION
  Report Type: Report from Study
  Country: CA (occurrence: CA)
  Receive Date: 20121127
  Receipt Date: 20121127
  Transmission Date: 20130627
  Serious: Yes (Other)
  Sender: FDA-Public Use
  Company Number: CA-ROCHE-1157164

PATIENT
  Sex: Male
  Weight: 64.01 kg

DRUGS (2)
  1. CAPECITABINE [Suspect]
     Indication: BILIARY CANCER METASTATIC
     Route: 048
     Dates: start: 201206, end: 201209
  2. MORPHINE [Concomitant]

REACTIONS (3)
  - Condition aggravated [Recovered/Resolved]
  - Asthenia [Recovered/Resolved]
  - Asthenia [Recovered/Resolved]
